FAERS Safety Report 18177690 (Version 2)
Quarter: 2022Q4

REPORT INFORMATION
  Report Type: Spontaneous
  Country: DE (occurrence: DE)
  Receive Date: 20200821
  Receipt Date: 20221028
  Transmission Date: 20230112
  Serious: Yes (Hospitalization)
  Sender: FDA-Public Use
  Company Number: DE-ADRED-05237-01

PATIENT
  Age: 36 Year
  Sex: Male

DRUGS (1)
  1. ACYCLOVIR [Suspect]
     Active Substance: ACYCLOVIR
     Indication: Product used for unknown indication
     Dosage: 2400 MILLIGRAM DAILY;
     Route: 048

REACTIONS (4)
  - Rash [Unknown]
  - Eye pain [Unknown]
  - Rash [Unknown]
  - Product prescribing error [Unknown]
